FAERS Safety Report 8026534-9 (Version None)
Quarter: 2012Q1

REPORT INFORMATION
  Report Type: 
  Country: None (occurrence: None)
  Receive Date: 20120106
  Receipt Date: 20120104
  Transmission Date: 20120608
  Serious: Yes (Other)
  Sender: FDA-Public Use
  Company Number: DE-BRISTOL-MYERS SQUIBB COMPANY-16247777

PATIENT
  Age: 15 Year
  Sex: Female

DRUGS (3)
  1. ABILIFY [Suspect]
     Indication: AGGRESSION
     Dosage: INTERRUPTED ON 27OCT11,RESTARTED ON 28OCT11-15NOV11;10MG
     Route: 048
     Dates: start: 20111013, end: 20111115
  2. TOPAMAX [Concomitant]
     Indication: CONVULSION
     Dates: start: 20090101
  3. VALPROATE SODIUM [Concomitant]
     Indication: CONVULSION
     Dosage: ORFIRIL LONG
     Dates: start: 20070101

REACTIONS (1)
  - EPILEPSY [None]
